FAERS Safety Report 8362946-1 (Version None)
Quarter: 2012Q2

REPORT INFORMATION
  Report Type: 
  Country: None (occurrence: None)
  Receive Date: 20120516
  Receipt Date: 20120426
  Transmission Date: 20120825
  Serious: No
  Sender: FDA-Public Use
  Company Number: US-MYLANLABS-2012S1007382

PATIENT
  Age: 52 Year
  Sex: Female

DRUGS (1)
  1. BUPROPION HYDROCHLORIDE [Suspect]
     Indication: WEIGHT DECREASED
     Route: 048
     Dates: start: 20120320, end: 20120324

REACTIONS (9)
  - PALPITATIONS [None]
  - HEADACHE [None]
  - NAUSEA [None]
  - WRONG TECHNIQUE IN DRUG USAGE PROCESS [None]
  - DIARRHOEA [None]
  - TREMOR [None]
  - DIZZINESS [None]
  - MALAISE [None]
  - DYSPEPSIA [None]
